FAERS Safety Report 4625086-0 (Version None)
Quarter: 2005Q1

REPORT INFORMATION
  Report Type: 
  Country: None (occurrence: None)
  Receive Date: 20050325
  Receipt Date: 20050118
  Transmission Date: 20050727
  Serious: No
  Sender: FDA-Public Use
  Company Number: USA050188572

PATIENT
  Age: 78 Year
  Sex: Female

DRUGS (2)
  1. FORTEO [Suspect]
     Indication: OSTEOPOROSIS
     Dosage: 20 UG/1 IN THE EVENING
     Dates: start: 20041201
  2. CORAL CALCIUM [Concomitant]

REACTIONS (2)
  - CHEST PAIN [None]
  - PRURITUS GENERALISED [None]
